FAERS Safety Report 13718146 (Version 2)
Quarter: 2017Q3

REPORT INFORMATION
  Report Type: Spontaneous
  Country: US (occurrence: US)
  Receive Date: 20170705
  Receipt Date: 20170817
  Transmission Date: 20171127
  Serious: Yes (Other)
  Sender: FDA-Public Use
  Company Number: US-JNJFOC-20170623400

PATIENT
  Age: 53 Year
  Sex: Female
  Weight: 84.6 kg

DRUGS (1)
  1. YONDELIS [Suspect]
     Active Substance: TRABECTEDIN
     Indication: SOFT TISSUE SARCOMA
     Dosage: TOTAL DOSE: 8.4 MG??3 CYCLES
     Route: 042
     Dates: start: 20170511, end: 20170622

REACTIONS (5)
  - Catheter site discharge [Unknown]
  - Catheter site pain [Not Recovered/Not Resolved]
  - Catheter site swelling [Not Recovered/Not Resolved]
  - Device dislocation [Unknown]
  - Catheter site erythema [Not Recovered/Not Resolved]

NARRATIVE: CASE EVENT DATE: 20170622
